FAERS Safety Report 14210428 (Version 1)
Quarter: 2017Q4

REPORT INFORMATION
  Report Type: Spontaneous
  Country: US (occurrence: US)
  Receive Date: 20171121
  Receipt Date: 20171121
  Transmission Date: 20180321
  Serious: Yes (Hospitalization)
  Sender: FDA-Public Use
  Company Number: US-GREER LABORATORIES, INC.-2034771

PATIENT
  Age: 51 Year
  Sex: Female
  Weight: 75 kg

DRUGS (15)
  1. STANDARDIZED CAT HAIR [Concomitant]
     Active Substance: FELIS CATUS HAIR
     Route: 058
     Dates: start: 20170612, end: 20171106
  2. STANDARDIZED GRASS POLLEN, GRASS MIX 7 [Suspect]
     Active Substance: AGROSTIS GIGANTEA POLLEN\ANTHOXANTHUM ODORATUM POLLEN\DACTYLIS GLOMERATA POLLEN\FESTUCA PRATENSIS POLLEN\LOLIUM PERENNE POLLEN\PHLEUM PRATENSE POLLEN\POA PRATENSIS POLLEN
     Indication: MULTIPLE ALLERGIES
     Route: 058
     Dates: start: 20170612, end: 20171106
  3. DILUENT, HUMAN SERUM ALBUMIN SALINE [Concomitant]
     Route: 058
     Dates: start: 20170612, end: 20171106
  4. MOLDS, RUSTS AND SMUTS, GS MOLD MIX #1 [Concomitant]
     Active Substance: ALTERNARIA ALTERNATA\ ASPERGILLUS NIGER VAR. NIGER\COCHLIOBOLUS SATIVUS\CLADOSPORIUM SPHAEROSPERMUM\PENICILLIUM CHRYSOGENUM VAR. CHRYSOGENUM
     Route: 058
     Dates: start: 20170612, end: 20171106
  5. STANDARDIZED MITE, DERMATOPHAGOIDES PTERONYSSINUS [Concomitant]
     Active Substance: DERMATOPHAGOIDES PTERONYSSINUS
     Route: 058
     Dates: start: 20170612, end: 20171106
  6. POLLENS - WEEDS AND GARDEN PLANTS, GS NATIONAL WEED MIX [Concomitant]
     Route: 058
     Dates: start: 20170612, end: 20171106
  7. STANDARDIZED MITE, DERMATOPHAGOIDES FARINAE [Concomitant]
     Active Substance: DERMATOPHAGOIDES FARINAE
     Route: 058
     Dates: start: 20170612, end: 20171106
  8. MOLDS, RUSTS AND SMUTS, FUSARIUM MONILIFORME [Concomitant]
     Active Substance: GIBBERELLA FUJIKUROI
     Route: 058
     Dates: start: 20170612, end: 20171106
  9. CLARITIN [Concomitant]
     Active Substance: LORATADINE
     Route: 048
  10. POLLENS - WEEDS AND GARDEN PLANTS, PLANTAIN, ENGLISH PLANTAGO LANCEOLATA [Concomitant]
     Active Substance: PLANTAGO LANCEOLATA POLLEN
     Route: 058
     Dates: start: 20170612, end: 20171107
  11. MOLDS, RUSTS AND SMUTS, EPICOCCUM NIGRUM [Suspect]
     Active Substance: EPICOCCUM NIGRUM
     Route: 058
     Dates: start: 20170612, end: 20171106
  12. SINGULAIR [Concomitant]
     Active Substance: MONTELUKAST SODIUM
     Route: 048
  13. ADVAIR DISKUS [Concomitant]
     Active Substance: FLUTICASONE PROPIONATE\SALMETEROL XINAFOATE
     Route: 055
  14. POLLENS - TREES, GS EASTERN 10 TREE MIX [Concomitant]
     Active Substance: ACER SACCHARUM POLLEN\BETULA NIGRA POLLEN\CARYA OVATA POLLEN\FAGUS GRANDIFOLIA POLLEN\FRAXINUS AMERICANA POLLEN\LIQUIDAMBAR STYRACIFLUA POLLEN\PLATANUS OCCIDENTALIS POLLEN\POPULUS DELTOIDES SUBSP. DELTOIDES POLLEN\QUERCUS RUBRA POLLEN\ULMUS AMERICANA POLLEN
     Route: 058
     Dates: start: 20170612, end: 20171106
  15. DILUENT, HUMAN SERUM ALBUMIN SALINE [Concomitant]
     Route: 058
     Dates: start: 20170612, end: 20171106

REACTIONS (3)
  - Drug administration error [Unknown]
  - Anaphylactic reaction [Recovered/Resolved]
  - Endotracheal intubation [Recovered/Resolved]

NARRATIVE: CASE EVENT DATE: 20171106
